FAERS Safety Report 9542141 (Version 1)
Quarter: 2013Q3

REPORT INFORMATION
  Report Type: Spontaneous
  Country: US (occurrence: None)
  Receive Date: 20130919
  Receipt Date: 20130919
  Transmission Date: 20140515
  Serious: Yes (Other)
  Sender: FDA-Public Use
  Company Number: None

PATIENT
  Age: 36 Year
  Sex: Female
  Weight: 127.01 kg

DRUGS (1)
  1. CHLORAPREP [Suspect]
     Indication: SURGERY
     Dates: start: 20130913, end: 20130913

REACTIONS (4)
  - Application site erythema [None]
  - Application site vesicles [None]
  - Skin exfoliation [None]
  - Pruritus [None]
